FAERS Safety Report 20816630 (Version 2)
Quarter: 2022Q2

REPORT INFORMATION
  Report Type: Report from Study
  Country: US (occurrence: US)
  Receive Date: 20220512
  Receipt Date: 20220518
  Transmission Date: 20220721
  Serious: No
  Sender: FDA-Public Use
  Company Number: US-AMGEN-USASL2021188665

PATIENT
  Age: 84 Year
  Sex: Female

DRUGS (6)
  1. ENBREL [Suspect]
     Active Substance: ETANERCEPT
     Indication: Product used for unknown indication
     Dosage: UNK
     Route: 065
     Dates: start: 20220414
  2. ENBREL [Suspect]
     Active Substance: ETANERCEPT
     Indication: Autoimmune disorder
  3. ENBREL [Suspect]
     Active Substance: ETANERCEPT
     Indication: Dermatitis atopic
  4. ENBREL [Suspect]
     Active Substance: ETANERCEPT
     Indication: Off label use
  5. PREDNISONE [Concomitant]
     Active Substance: PREDNISONE
     Indication: Product used for unknown indication
     Dosage: UNK
     Route: 065
  6. COVID-19 vaccine [Concomitant]

REACTIONS (1)
  - Off label use [Unknown]

NARRATIVE: CASE EVENT DATE: 20220414
